FAERS Safety Report 5191286-7 (Version None)
Quarter: 2006Q4

REPORT INFORMATION
  Report Type: 
  Country: None (occurrence: None)
  Receive Date: 20061220
  Receipt Date: 20061220
  Transmission Date: 20070319
  Serious: Yes (Other)
  Sender: FDA-Public Use
  Company Number: None

PATIENT
  Sex: Female
  Weight: 55.8 kg

DRUGS (12)
  1. MAXIPIME [Suspect]
     Indication: LUNG INFECTION PSEUDOMONAL
     Dosage: 2GM  EVERY 12 HOURS  IV
     Route: 042
     Dates: start: 20061215, end: 20061215
  2. CIPROFLOXACIN HCL [Concomitant]
  3. THEO-DUR [Concomitant]
  4. XANAX [Concomitant]
  5. SINGULAIR [Concomitant]
  6. HUMIBID L.A. [Concomitant]
  7. ZOLOFT [Concomitant]
  8. NEXIUM [Concomitant]
  9. VALTREX [Concomitant]
  10. LUNESTA [Concomitant]
  11. XOPENEX [Concomitant]
  12. MUCOMYST [Concomitant]

REACTIONS (1)
  - RASH PRURITIC [None]
